FAERS Safety Report 4704088-X (Version None)
Quarter: 2005Q2

REPORT INFORMATION
  Report Type: 
  Country: None (occurrence: None)
  Receive Date: 20050629
  Receipt Date: 20050614
  Transmission Date: 20051028
  Serious: No
  Sender: FDA-Public Use
  Company Number: 11572

PATIENT
  Age: 53 Year
  Sex: Male

DRUGS (8)
  1. DOXORUBICIN HCL [Suspect]
     Indication: NON-HODGKIN'S LYMPHOMA
     Dosage: 300 MG/M2 TOTAL
  2. BLEOMYCIN [Suspect]
     Indication: NON-HODGKIN'S LYMPHOMA
     Dosage: 40 MG/M2 TOTAL
  3. METHOTREXATE [Suspect]
     Indication: NON-HODGKIN'S LYMPHOMA
     Dosage: 6000 MG/M2 TOTAL
  4. CYTARABINE [Suspect]
     Indication: NON-HODGKIN'S LYMPHOMA
     Dosage: 800 MG/M2 TOTAL
  5. ETOPOSIDE [Suspect]
     Indication: NON-HODGKIN'S LYMPHOMA
     Dosage: 1200 MG/M2 TOTAL
  6. CYCLOPHOSPHAMIDE [Suspect]
     Indication: NON-HODGKIN'S LYMPHOMA
     Dosage: 4800 MG/M2 TOTAL
  7. VINDESINE [Suspect]
     Indication: NON-HODGKIN'S LYMPHOMA
     Dosage: 8 MG/M2 TOTAL
  8. IFOSFAMIDE [Suspect]
     Indication: NON-HODGKIN'S LYMPHOMA
     Dosage: 6000 MG/M2 TOTAL

REACTIONS (1)
  - ACUTE PROMYELOCYTIC LEUKAEMIA [None]
